FAERS Safety Report 13761824 (Version 3)
Quarter: 2017Q4

REPORT INFORMATION
  Report Type: Spontaneous
  Country: IE (occurrence: IE)
  Receive Date: 20170718
  Receipt Date: 20171023
  Transmission Date: 20180320
  Serious: Yes (Hospitalization, Other)
  Sender: FDA-Public Use
  Company Number: IE-AMGEN-IRLSP2017105679

PATIENT
  Age: 47 Year
  Sex: Female

DRUGS (7)
  1. CALCIUM [Concomitant]
     Active Substance: CALCIUM
  2. L GLUTAMINE [Concomitant]
     Active Substance: GLUTAMINE
  3. VITAMIN D [Concomitant]
     Active Substance: CHOLECALCIFEROL
  4. MOVICOL [Concomitant]
     Active Substance: POLYETHYLENE GLYCOL 3350\POTASSIUM CHLORIDE\SODIUM BICARBONATE\SODIUM CHLORIDE
     Indication: CONSTIPATION
     Dosage: 2 SACHETS (13.8GM), QD
     Route: 048
     Dates: start: 20130305
  5. PROLIA [Suspect]
     Active Substance: DENOSUMAB
     Indication: OSTEOPOROSIS POSTMENOPAUSAL
     Dosage: 60 MG, Q6MO
     Route: 030
     Dates: start: 201509
  6. BUSCOPAN [Concomitant]
     Active Substance: BUTYLSCOPOLAMINE BROMIDE
     Indication: ABDOMINAL PAIN
     Dosage: 10 MG, UNK
     Route: 048
     Dates: start: 20170914
  7. PIRITON [Concomitant]
     Active Substance: CHLORPHENIRAMINE MALEATE
     Indication: PRURITUS
     Dosage: 4 MG (10ML), TID
     Route: 048
     Dates: start: 20170329

REACTIONS (56)
  - Asthenia [Recovering/Resolving]
  - Vitreous floaters [Unknown]
  - Pruritus [Unknown]
  - Hypoaesthesia [Recovering/Resolving]
  - Lactose intolerance [Unknown]
  - Throat irritation [Unknown]
  - Paraesthesia [Unknown]
  - Incontinence [Recovering/Resolving]
  - Pain [Unknown]
  - Tremor [Unknown]
  - Cough [Unknown]
  - Neuralgia [Unknown]
  - Tooth pulp haemorrhage [Unknown]
  - Back pain [Unknown]
  - Diarrhoea [Unknown]
  - Weight decreased [Unknown]
  - Dyspepsia [Unknown]
  - Paraesthesia oral [Unknown]
  - Abdominal pain [Unknown]
  - Mean cell haemoglobin increased [Unknown]
  - Feeling abnormal [Unknown]
  - Disturbance in attention [Unknown]
  - Rash [Unknown]
  - Muscle twitching [Recovering/Resolving]
  - Malaise [Recovering/Resolving]
  - Chest pain [Unknown]
  - Blood calcium increased [Recovering/Resolving]
  - Sneezing [Unknown]
  - Arthralgia [Unknown]
  - Orthostatic hypotension [Recovering/Resolving]
  - Avulsion fracture [Not Recovered/Not Resolved]
  - Adverse drug reaction [Unknown]
  - Dyspnoea [Unknown]
  - Dizziness [Unknown]
  - Hypoaesthesia [Unknown]
  - Tinnitus [Unknown]
  - Toothache [Unknown]
  - Yawning [Unknown]
  - Neck pain [Unknown]
  - Drug hypersensitivity [Unknown]
  - Urticaria [Unknown]
  - Hyperparathyroidism [Not Recovered/Not Resolved]
  - Muscle spasms [Recovering/Resolving]
  - Hypercalcaemia [Recovering/Resolving]
  - Hypersensitivity [Recovering/Resolving]
  - Visual impairment [Unknown]
  - Throat tightness [Unknown]
  - Dysphagia [Unknown]
  - Memory impairment [Unknown]
  - Frequent bowel movements [Unknown]
  - Muscle atrophy [Unknown]
  - Malaise [Unknown]
  - Dysgeusia [Unknown]
  - Asthenia [Unknown]
  - Fatigue [Unknown]
  - Hypocalcaemia [Recovering/Resolving]

NARRATIVE: CASE EVENT DATE: 20160714
